FAERS Safety Report 4899857-X (Version None)
Quarter: 2006Q1

REPORT INFORMATION
  Report Type: 
  Country: None (occurrence: None)
  Receive Date: 20060120
  Receipt Date: 20041206
  Transmission Date: 20060701
  Serious: Yes (Hospitalization)
  Sender: FDA-Public Use
  Company Number: 388575

PATIENT
  Age: 87 Year
  Sex: Female

DRUGS (2)
  1. ROMAZICON [Suspect]
     Dates: start: 20041115
  2. MIDAZOLAM HCL [Concomitant]

REACTIONS (2)
  - BLOOD PRESSURE DECREASED [None]
  - DRUG INEFFECTIVE [None]
